FAERS Safety Report 5369532-6 (Version None)
Quarter: 2007Q2

REPORT INFORMATION
  Report Type: 
  Country: None (occurrence: None)
  Receive Date: 20070625
  Receipt Date: 20070620
  Transmission Date: 20071010
  Serious: Yes (Other)
  Sender: FDA-Public Use
  Company Number: B0474830A

PATIENT
  Age: 28 Year
  Sex: Female

DRUGS (4)
  1. EPIVIR [Suspect]
     Indication: HIV INFECTION
     Route: 048
  2. RETROVIR [Suspect]
     Indication: HIV INFECTION
     Route: 048
  3. VIRACEPT [Suspect]
     Indication: HIV INFECTION
     Route: 048
  4. MORPHINE [Suspect]
     Route: 048

REACTIONS (3)
  - DRUG DEPENDENCE [None]
  - DRUG EXPOSURE DURING PREGNANCY [None]
  - TREATMENT NONCOMPLIANCE [None]
